FAERS Safety Report 9118826 (Version 1)
Quarter: 2013Q1

REPORT INFORMATION
  Report Type: Spontaneous
  Country: US (occurrence: None)
  Receive Date: 20130221
  Receipt Date: 20130221
  Transmission Date: 20140127
  Serious: Yes (Life-Threatening)
  Sender: FDA-Public Use
  Company Number: None

PATIENT
  Age: 60 Year
  Sex: Female
  Weight: 92.99 kg

DRUGS (1)
  1. GLIPIZIDE [Suspect]
     Indication: DIABETES MELLITUS
     Dosage: 1/2 TABLET MORN-EVE
     Dates: start: 20130107, end: 20130109

REACTIONS (9)
  - Dyspnoea [None]
  - Headache [None]
  - Asthenia [None]
  - Fatigue [None]
  - Depression [None]
  - Lacrimation increased [None]
  - Rhinorrhoea [None]
  - Vision blurred [None]
  - Heart rate increased [None]
